FAERS Safety Report 24888924 (Version 1)
Quarter: 2025Q1

REPORT INFORMATION
  Report Type: Spontaneous
  Country: US (occurrence: None)
  Receive Date: 20250123
  Receipt Date: 20250123
  Transmission Date: 20250409
  Serious: Yes (unspecified)
  Sender: FDA-CTU
  Company Number: None

PATIENT
  Age: 60 Year
  Sex: Female
  Weight: 56 kg

DRUGS (5)
  1. GALCANEZUMAB-GNLM [Suspect]
     Active Substance: GALCANEZUMAB-GNLM
     Indication: Migraine
     Route: 058
  2. NURTEC ODT [Suspect]
     Active Substance: RIMEGEPANT SULFATE
  3. UBRELVY [Suspect]
     Active Substance: UBROGEPANT
  4. AJOVY [Suspect]
     Active Substance: FREMANEZUMAB-VFRM
  5. FIORICET [Suspect]
     Active Substance: ACETAMINOPHEN\BUTALBITAL\CAFFEINE

REACTIONS (1)
  - Angioedema [None]

NARRATIVE: CASE EVENT DATE: 20240703
